FAERS Safety Report 21448654 (Version 1)
Quarter: 2022Q4

REPORT INFORMATION
  Report Type: Other
  Country: None (occurrence: CN)
  Receive Date: 20221013
  Receipt Date: 20221013
  Transmission Date: 20230113
  Serious: Yes (Other)
  Sender: FDA-Public Use
  Company Number: CN-Jiangsu Hengrui Medicine Co., Ltd.-2133767

PATIENT
  Age: 43 Year
  Sex: Male
  Weight: 58 kg

DRUGS (3)
  1. OXALIPLATIN [Suspect]
     Active Substance: OXALIPLATIN
     Indication: Rectal cancer
     Route: 041
     Dates: start: 20210114, end: 20210114
  2. CAPECITABINE [Suspect]
     Active Substance: CAPECITABINE
     Route: 048
     Dates: start: 20210114, end: 20210127
  3. CETUXIMAB [Suspect]
     Active Substance: CETUXIMAB
     Dates: start: 20210125, end: 20210125

REACTIONS (1)
  - Hypercalcaemia [Unknown]

NARRATIVE: CASE EVENT DATE: 20210219
